FAERS Safety Report 15432038 (Version 1)
Quarter: 2018Q3

REPORT INFORMATION
  Report Type: Spontaneous
  Country: AU (occurrence: AU)
  Receive Date: 20180926
  Receipt Date: 20180926
  Transmission Date: 20181010
  Serious: Yes (Other)
  Sender: FDA-Public Use
  Company Number: AU-LPDUSPRD-20181734

PATIENT
  Age: 35 Year
  Sex: Female

DRUGS (2)
  1. FERINJECT [Suspect]
     Active Substance: FERRIC CARBOXYMALTOSE
     Dosage: 1000 MG
     Route: 065
     Dates: start: 20180312
  2. VITAMIN B MULTI [Concomitant]
     Dosage: UNKNOWN
     Route: 065

REACTIONS (16)
  - Chest discomfort [Unknown]
  - Headache [Unknown]
  - Hypophosphataemia [Unknown]
  - Bone pain [Unknown]
  - Hepatic pain [Unknown]
  - Pain [Unknown]
  - Eye pain [Unknown]
  - Blood urea decreased [Unknown]
  - Vascular pain [Unknown]
  - Myalgia [Unknown]
  - Back pain [Unknown]
  - Lethargy [Not Recovered/Not Resolved]
  - Blood creatinine decreased [Unknown]
  - Haemoglobin decreased [Unknown]
  - Transaminases increased [Unknown]
  - Arthralgia [Unknown]

NARRATIVE: CASE EVENT DATE: 2018
